FAERS Safety Report 5144258-2 (Version None)
Quarter: 2006Q4

REPORT INFORMATION
  Report Type: 
  Country: None (occurrence: None)
  Receive Date: 20061102
  Receipt Date: 20061102
  Transmission Date: 20070319
  Serious: No
  Sender: FDA-Public Use
  Company Number: None

PATIENT
  Age: 67 Year
  Sex: Male
  Weight: 98.8842 kg

DRUGS (1)
  1. LOPID [Suspect]
     Indication: HYPERTRIGLYCERIDAEMIA
     Dosage: 600MG  BID  PO
     Route: 048
     Dates: start: 20061012, end: 20061017

REACTIONS (1)
  - SWOLLEN TONGUE [None]
